FAERS Safety Report 9886515 (Version 3)
Quarter: 2014Q1

REPORT INFORMATION
  Report Type: Spontaneous
  Country: US (occurrence: US)
  Receive Date: 20140210
  Receipt Date: 20140312
  Transmission Date: 20141002
  Serious: No
  Sender: FDA-Public Use
  Company Number: US-GILEAD-2014-0094157

PATIENT
  Sex: Male

DRUGS (2)
  1. LETAIRIS [Suspect]
     Indication: PULMONARY HYPERTENSION
     Dosage: 10 MG, QD
     Route: 065
     Dates: start: 20140203
  2. LETAIRIS [Suspect]
     Indication: EISENMENGER^S SYNDROME
     Dosage: 5 MG, QD
     Route: 065
     Dates: start: 20131203

REACTIONS (1)
  - Headache [Recovered/Resolved]
